FAERS Safety Report 7649811-X (Version None)
Quarter: 2011Q3

REPORT INFORMATION
  Report Type: 
  Country: None (occurrence: None)
  Receive Date: 20110802
  Receipt Date: 20110725
  Transmission Date: 20111222
  Serious: Yes (Other)
  Sender: FDA-Public Use
  Company Number: DE-BAYER-2011-064515

PATIENT
  Age: 72 Year
  Sex: Female
  Weight: 67 kg

DRUGS (3)
  1. CIPROFLOXACIN [Suspect]
     Indication: CYSTITIS NONINFECTIVE
     Dosage: 500 MG, BID
     Route: 048
     Dates: start: 20101001
  2. BLASENTEE [Concomitant]
     Indication: CYSTITIS NONINFECTIVE
     Dosage: 1 L, QD
     Route: 048
  3. APIS MELLIFICA [Concomitant]
     Indication: CYSTITIS NONINFECTIVE
     Dosage: UNK
     Route: 048

REACTIONS (1)
  - PRURITUS GENITAL [None]
